FAERS Safety Report 6188980-8 (Version None)
Quarter: 2009Q2

REPORT INFORMATION
  Report Type: 
  Country: None (occurrence: None)
  Receive Date: 20090513
  Receipt Date: 20090430
  Transmission Date: 20091009
  Serious: Yes (Death, Life-Threatening, Other)
  Sender: FDA-Public Use
  Company Number: FR-PFIZER INC-2009201469

PATIENT
  Age: 85 Year

DRUGS (3)
  1. DEPO-MEDROL [Suspect]
     Dosage: 40 MG, SINGLE
     Route: 037
     Dates: start: 20081216, end: 20081216
  2. CYTARABINE [Suspect]
     Dosage: 40 MG, SINGLE
     Route: 037
     Dates: start: 20081216, end: 20081216
  3. METHOTREXATE SODIUM [Suspect]
     Dosage: 15 MG, SINGLE
     Route: 037
     Dates: start: 20081216, end: 20081216

REACTIONS (1)
  - AXONAL NEUROPATHY [None]
